FAERS Safety Report 13567164 (Version 1)
Quarter: 2017Q2

REPORT INFORMATION
  Report Type: Spontaneous
  Country: US (occurrence: US)
  Receive Date: 20170522
  Receipt Date: 20170522
  Transmission Date: 20170830
  Serious: No
  Sender: FDA-Public Use
  Company Number: US-TEVA-753060ACC

PATIENT
  Age: 84 Year
  Sex: Female

DRUGS (1)
  1. CLONIDINE. [Suspect]
     Active Substance: CLONIDINE
     Route: 065

REACTIONS (4)
  - Application site rash [Unknown]
  - Pruritus [Unknown]
  - Hypersensitivity [Unknown]
  - Erythema [Unknown]
